FAERS Safety Report 5086927-9 (Version None)
Quarter: 2006Q3

REPORT INFORMATION
  Report Type: 
  Country: None (occurrence: None)
  Receive Date: 20060818
  Receipt Date: 20060808
  Transmission Date: 20061208
  Serious: Yes (Hospitalization, Other)
  Sender: FDA-Public Use
  Company Number: 2006096831

PATIENT
  Age: 32 Year
  Sex: Female
  Weight: 61.2356 kg

DRUGS (7)
  1. DEPO-PROVERA [Suspect]
     Indication: CONTRACEPTION
     Dosage: 150 MG (150 MG, 1ST INJECTION), 150 MG (150 MG, LAST INJECTION)
     Dates: start: 19920101, end: 19920101
  2. DEPO-PROVERA [Suspect]
     Indication: CONTRACEPTION
     Dosage: 150 MG (150 MG, 1ST INJECTION), 150 MG (150 MG, LAST INJECTION)
     Dates: start: 20060101, end: 20060101
  3. CELEXA [Concomitant]
  4. TRAZODONE (HYDROXYZINE EMBONATE) [Concomitant]
  5. FLEXERIL [Concomitant]
  6. HYDROCODONE (HYDROCODONE) [Concomitant]
  7. VISTARIL [Concomitant]

REACTIONS (7)
  - ABASIA [None]
  - ANKLE FRACTURE [None]
  - BLOOD CHOLESTEROL INCREASED [None]
  - DRUG EXPOSURE DURING PREGNANCY [None]
  - LUMBAR VERTEBRAL FRACTURE [None]
  - PREGNANCY WITH INJECTABLE CONTRACEPTIVE [None]
  - ROAD TRAFFIC ACCIDENT [None]
